FAERS Safety Report 19070644 (Version 1)
Quarter: 2021Q1

REPORT INFORMATION
  Report Type: Spontaneous
  Country: US (occurrence: US)
  Receive Date: 20210330
  Receipt Date: 20210330
  Transmission Date: 20210420
  Serious: No
  Sender: FDA-Public Use
  Company Number: US-GLAXOSMITHKLINE-USCH2021015938

PATIENT

DRUGS (2)
  1. VOLTAREN ARTHRITIS PAIN [Suspect]
     Active Substance: DICLOFENAC SODIUM
     Indication: NERVE COMPRESSION
  2. MENTHOLATUM RUB [Suspect]
     Active Substance: CAMPHOR (NATURAL)\EUCALYPTUS OIL\MENTHOL\METHYL SALICYLATE
     Indication: NERVE COMPRESSION

REACTIONS (3)
  - Product use in unapproved indication [Unknown]
  - Product administered at inappropriate site [Unknown]
  - Drug ineffective for unapproved indication [Unknown]
